FAERS Safety Report 22201381 (Version 2)
Quarter: 2023Q2

REPORT INFORMATION
  Report Type: Spontaneous
  Country: BR (occurrence: BR)
  Receive Date: 20230412
  Receipt Date: 20230515
  Transmission Date: 20230722
  Serious: Yes (Other)
  Sender: FDA-Public Use
  Company Number: BR-TAKEDA-2023TUS035179

PATIENT
  Age: 22 Year
  Sex: Male

DRUGS (2)
  1. LISDEXAMFETAMINE DIMESYLATE [Suspect]
     Active Substance: LISDEXAMFETAMINE DIMESYLATE
     Indication: Attention deficit hyperactivity disorder
     Dosage: UNK
     Route: 065
  2. METHYLPHENIDATE HYDROCHLORIDE [Suspect]
     Active Substance: METHYLPHENIDATE HYDROCHLORIDE
     Indication: Product used for unknown indication
     Dosage: UNK
     Route: 065

REACTIONS (11)
  - General physical health deterioration [Unknown]
  - Impaired work ability [Unknown]
  - Fibromyalgia [Unknown]
  - Executive dysfunction [Unknown]
  - Frustration tolerance decreased [Unknown]
  - Stress [Unknown]
  - Feeding disorder [Unknown]
  - Crying [Unknown]
  - Drug ineffective [Unknown]
  - Fatigue [Unknown]
  - Depression [Unknown]
